FAERS Safety Report 12583316 (Version 1)
Quarter: 2016Q3

REPORT INFORMATION
  Report Type: Spontaneous
  Country: US (occurrence: US)
  Receive Date: 20160722
  Receipt Date: 20160722
  Transmission Date: 20161109
  Serious: No
  Sender: FDA-Public Use
  Company Number: US-FRI-1000078860

PATIENT
  Age: 80 Year
  Sex: Female

DRUGS (1)
  1. NAMENDA XR [Suspect]
     Active Substance: MEMANTINE HYDROCHLORIDE
     Indication: DEMENTIA ALZHEIMER^S TYPE

REACTIONS (3)
  - Soliloquy [Not Recovered/Not Resolved]
  - Diarrhoea [Recovered/Resolved]
  - Incoherent [Not Recovered/Not Resolved]
